FAERS Safety Report 17726234 (Version 3)
Quarter: 2025Q3

REPORT INFORMATION
  Report Type: Spontaneous
  Country: EU (occurrence: EU)
  Receive Date: 20200429
  Receipt Date: 20250704
  Transmission Date: 20251020
  Serious: Yes (Death, Hospitalization, Other)
  Sender: AUROBINDO
  Company Number: EU-002147023-NVSC2020PL100994

PATIENT
  Age: 66 Year
  Sex: Male

DRUGS (11)
  1. AMOXICILLIN\CLAVULANIC ACID [Suspect]
     Active Substance: AMOXICILLIN\CLAVULANIC ACID
     Indication: Product used for unknown indication
     Dosage: 1062.5 MILLIGRAM, TWO TIMES A DAY,Q12H
     Route: 048
     Dates: start: 20190813
  2. CEFAZOLIN SODIUM [Suspect]
     Active Substance: CEFAZOLIN SODIUM
     Indication: Product used for unknown indication
     Route: 033
  3. CEFTAZIDIME [Suspect]
     Active Substance: CEFTAZIDIME
     Indication: Product used for unknown indication
     Route: 065
  4. CIPROFLOXACIN [Suspect]
     Active Substance: CIPROFLOXACIN
     Indication: Product used for unknown indication
     Dosage: 250 MILLIGRAM, TWO TIMES A DAY (500 MG ONCE A DAY)
     Route: 065
     Dates: start: 20190805
  5. CIPROFLOXACIN [Suspect]
     Active Substance: CIPROFLOXACIN
     Dosage: 500 MILLIGRAM, TWO TIMES A DAY (1000 MG,QD)
     Route: 048
  6. DOXYCYCLINE [Suspect]
     Active Substance: DOXYCYCLINE
     Indication: Product used for unknown indication
     Dosage: 200 MILLIGRAM, ONCE A DAY
     Route: 048
  7. DOXYCYCLINE [Suspect]
     Active Substance: DOXYCYCLINE
     Dosage: 100 MILLIGRAM, ONCE A DAY
     Route: 048
  8. LAMIVUDINE [Suspect]
     Active Substance: LAMIVUDINE
     Indication: Hepatitis B
     Route: 065
  9. VANCOMYCIN [Suspect]
     Active Substance: VANCOMYCIN
     Indication: Product used for unknown indication
     Route: 033
  10. VANCOMYCIN [Suspect]
     Active Substance: VANCOMYCIN
     Route: 033
     Dates: start: 20190730
  11. VANCOMYCIN [Suspect]
     Active Substance: VANCOMYCIN
     Route: 033
     Dates: start: 20190806

REACTIONS (8)
  - Respiratory failure [Fatal]
  - Shock [Fatal]
  - Oedema peripheral [Fatal]
  - Peripheral ischaemia [Fatal]
  - Anaemia [Fatal]
  - Haemorrhage [Fatal]
  - Drug ineffective [Fatal]
  - Acute generalised exanthematous pustulosis [Unknown]
